FAERS Safety Report 5444739-8 (Version None)
Quarter: 2007Q3

REPORT INFORMATION
  Report Type: 
  Country: None (occurrence: None)
  Receive Date: 20070906
  Receipt Date: 20070226
  Transmission Date: 20080115
  Serious: No
  Sender: FDA-Public Use
  Company Number: A0640989A

PATIENT
  Age: 62 Year
  Sex: Male

DRUGS (5)
  1. REQUIP [Suspect]
     Indication: RESTLESS LEGS SYNDROME
     Dosage: 1MG TWICE PER DAY
     Route: 048
  2. LOTREL [Concomitant]
  3. DAYPRO [Concomitant]
  4. NEXIUM [Concomitant]
  5. FLOMAX [Concomitant]

REACTIONS (1)
  - INSOMNIA [None]
